FAERS Safety Report 9538350 (Version 2)
Quarter: 2013Q4

REPORT INFORMATION
  Report Type: Spontaneous
  Country: US (occurrence: US)
  Receive Date: 20130920
  Receipt Date: 20131202
  Transmission Date: 20140711
  Serious: Yes (Death)
  Sender: FDA-Public Use
  Company Number: US-CELGENEUS-163-21660-13092748

PATIENT
  Age: 77 Year
  Sex: Male

DRUGS (1)
  1. ABRAXANE [Suspect]
     Indication: MALIGNANT MELANOMA
     Route: 041

REACTIONS (1)
  - Metastatic malignant melanoma [Fatal]
